FAERS Safety Report 25583183 (Version 1)
Quarter: 2025Q3

REPORT INFORMATION
  Report Type: Spontaneous
  Country: US (occurrence: US)
  Receive Date: 20250721
  Receipt Date: 20250721
  Transmission Date: 20251020
  Serious: No
  Sender: SANOFI AVENTIS
  Company Number: US-SA-2025SA203208

PATIENT
  Sex: Male
  Weight: 92.971 kg

DRUGS (1)
  1. DUPIXENT [Suspect]
     Active Substance: DUPILUMAB
     Indication: Dermatitis atopic
     Dosage: 300 MG, QOW
     Route: 058

REACTIONS (9)
  - Erythema of eyelid [Unknown]
  - Eye swelling [Unknown]
  - Ocular hyperaemia [Unknown]
  - Vision blurred [Unknown]
  - Dry eye [Unknown]
  - Eye pruritus [Unknown]
  - Injection site bruising [Recovered/Resolved]
  - Injection site swelling [Recovered/Resolved]
  - Inappropriate schedule of product administration [Unknown]
